FAERS Safety Report 9365766 (Version 2)
Quarter: 2014Q2

REPORT INFORMATION
  Report Type: Report from Study
  Country: CA (occurrence: CA)
  Receive Date: 20130625
  Receipt Date: 20140527
  Transmission Date: 20141212
  Serious: Yes (Life-Threatening)
  Sender: FDA-Public Use
  Company Number: CA-JNJFOC-20130610162

PATIENT
  Age: 53 Year
  Sex: Male
  Weight: 88.9 kg

DRUGS (12)
  1. REMICADE [Suspect]
     Indication: RHEUMATOID ARTHRITIS
     Dosage: THEN EVERY 6 WEEKS
     Route: 042
     Dates: start: 20130527
  2. REMICADE [Suspect]
     Indication: RHEUMATOID ARTHRITIS
     Route: 042
     Dates: start: 20130611, end: 20130619
  3. REMICADE [Suspect]
     Indication: RHEUMATOID ARTHRITIS
     Dosage: THEN EVERY 6 WEEKS
     Route: 042
  4. REMICADE [Suspect]
     Indication: SCLERITIS
     Route: 042
     Dates: start: 20130611, end: 20130619
  5. REMICADE [Suspect]
     Indication: SCLERITIS
     Dosage: THEN EVERY 6 WEEKS
     Route: 042
     Dates: start: 20130527
  6. REMICADE [Suspect]
     Indication: SCLERITIS
     Dosage: THEN EVERY 6 WEEKS
     Route: 042
  7. REMICADE [Suspect]
     Indication: ANKYLOSING SPONDYLITIS
     Dosage: THEN EVERY 6 WEEKS
     Route: 042
     Dates: start: 20130527
  8. REMICADE [Suspect]
     Indication: ANKYLOSING SPONDYLITIS
     Route: 042
     Dates: start: 20130611, end: 20130619
  9. REMICADE [Suspect]
     Indication: ANKYLOSING SPONDYLITIS
     Dosage: THEN EVERY 6 WEEKS
     Route: 042
  10. PREDNISONE [Concomitant]
     Route: 065
  11. RABEPRAZOLE [Concomitant]
     Route: 065
  12. BENADRYL [Concomitant]
     Route: 065

REACTIONS (6)
  - Type IV hypersensitivity reaction [Recovered/Resolved]
  - Back pain [Recovered/Resolved]
  - Infusion related reaction [Recovered/Resolved]
  - Blood pressure systolic increased [Recovered/Resolved]
  - Scleral discolouration [Recovered/Resolved]
  - Off label use [Unknown]
